FAERS Safety Report 13890491 (Version 1)
Quarter: 2017Q3

REPORT INFORMATION
  Report Type: Spontaneous
  Country: CN (occurrence: CN)
  Receive Date: 20170822
  Receipt Date: 20170822
  Transmission Date: 20171127
  Serious: Yes (Other)
  Sender: FDA-Public Use
  Company Number: CN-BAYER-2017-140926

PATIENT

DRUGS (1)
  1. STIVARGA [Suspect]
     Active Substance: REGORAFENIB
     Dosage: TAKING WITHOUT MEAL
     Route: 048

REACTIONS (7)
  - Abdominal pain [None]
  - Wrong technique in product usage process [None]
  - Metastasis [None]
  - Neoplasm progression [None]
  - Urinary incontinence [None]
  - Pelvic pain [None]
  - Inappropriate prescribing [None]

NARRATIVE: CASE EVENT DATE: 20170724
